FAERS Safety Report 16071770 (Version 6)
Quarter: 2021Q1

REPORT INFORMATION
  Report Type: Spontaneous
  Country: US (occurrence: US)
  Receive Date: 20190314
  Receipt Date: 20210125
  Transmission Date: 20210419
  Serious: No
  Sender: FDA-Public Use
  Company Number: US-PFIZER INC-2019105336

PATIENT
  Age: 68 Year
  Sex: Female

DRUGS (1)
  1. CADUET [Suspect]
     Active Substance: AMLODIPINE BESYLATE\ATORVASTATIN CALCIUM
     Dosage: UNK

REACTIONS (5)
  - Somnolence [Unknown]
  - Urinary tract infection [Unknown]
  - Hypoacusis [Unknown]
  - Expired product administered [Unknown]
  - Bladder disorder [Unknown]
